FAERS Safety Report 4955497-5 (Version None)
Quarter: 2006Q1

REPORT INFORMATION
  Report Type: 
  Country: None (occurrence: None)
  Receive Date: 20060127
  Receipt Date: 20050620
  Transmission Date: 20060701
  Serious: Yes (Hospitalization)
  Sender: FDA-Public Use
  Company Number: 05-06-1077

PATIENT
  Age: 63 Year
  Sex: Female

DRUGS (1)
  1. CLOZAPINE [Suspect]
     Dosage: 550MG QD, ORAL
     Route: 048
     Dates: start: 20040101

REACTIONS (1)
  - PSYCHIATRIC SYMPTOM [None]
